FAERS Safety Report 5192683-6 (Version None)
Quarter: 2006Q4

REPORT INFORMATION
  Report Type: 
  Country: None (occurrence: None)
  Receive Date: 20061220
  Receipt Date: 20061207
  Transmission Date: 20070319
  Serious: Yes (Hospitalization)
  Sender: FDA-Public Use
  Company Number: 2005063918

PATIENT
  Age: 31 Year
  Sex: Female
  Weight: 93.441 kg

DRUGS (9)
  1. SU-011,248 (SUNITINIB MALATE) [Suspect]
     Indication: GASTROINTESTINAL STROMAL TUMOUR
     Dosage: 50 MG (50 MG, 1 IN 1 D) ORAL ; 37.5 MG (37.5 MG, 1 IN 1 D ) ORAL ; 25 MG (25 MG, 1 IN 1 D) ORAL
     Route: 048
     Dates: start: 20040630, end: 20040727
  2. SU-011,248 (SUNITINIB MALATE) [Suspect]
     Indication: GASTROINTESTINAL STROMAL TUMOUR
     Dosage: 50 MG (50 MG, 1 IN 1 D) ORAL ; 37.5 MG (37.5 MG, 1 IN 1 D ) ORAL ; 25 MG (25 MG, 1 IN 1 D) ORAL
     Route: 048
     Dates: start: 20040811, end: 20050422
  3. SU-011,248 (SUNITINIB MALATE) [Suspect]
     Indication: GASTROINTESTINAL STROMAL TUMOUR
     Dosage: 50 MG (50 MG, 1 IN 1 D) ORAL ; 37.5 MG (37.5 MG, 1 IN 1 D ) ORAL ; 25 MG (25 MG, 1 IN 1 D) ORAL
     Route: 048
     Dates: start: 20050427
  4. LISINOPRIL [Suspect]
     Indication: HYPERTENSION
     Dosage: 10 MG (10 MG, 1 IN 1 D) ORAL
     Route: 048
     Dates: start: 20041223, end: 20050423
  5. SYNTHROID [Concomitant]
  6. ARANESP [Concomitant]
  7. PROZAC [Concomitant]
  8. HYOSCYAMINE(HYOSCYAMINE) [Concomitant]
  9. CYANOCOBALAMIN [Concomitant]

REACTIONS (6)
  - ANGIONEUROTIC OEDEMA [None]
  - DRUG HYPERSENSITIVITY [None]
  - DYSPHAGIA [None]
  - HYPERTENSION [None]
  - HYPERTENSIVE CRISIS [None]
  - THERAPEUTIC RESPONSE UNEXPECTED WITH DRUG SUBSTITUTION [None]
